FAERS Safety Report 21260768 (Version 1)
Quarter: 2022Q3

REPORT INFORMATION
  Report Type: Spontaneous
  Country: US (occurrence: US)
  Receive Date: 20220826
  Receipt Date: 20220826
  Transmission Date: 20221027
  Serious: No
  Sender: FDA-Public Use
  Company Number: US-BANNER LIFE SCIENCES, LLC-2022BAN000163

PATIENT

DRUGS (1)
  1. BAFIERTAM [Suspect]
     Active Substance: MONOMETHYL FUMARATE
     Indication: Product used for unknown indication
     Dosage: 190 MILLIGRAM, BID
     Route: 048
     Dates: start: 20220626

REACTIONS (5)
  - Paraesthesia [Unknown]
  - Dizziness [Unknown]
  - Nausea [Unknown]
  - Erythema [Unknown]
  - Product dose omission issue [Unknown]

NARRATIVE: CASE EVENT DATE: 20220626
